FAERS Safety Report 8513337-1 (Version None)
Quarter: 2012Q3

REPORT INFORMATION
  Report Type: 
  Country: None (occurrence: None)
  Receive Date: 20120716
  Receipt Date: 20120706
  Transmission Date: 20120928
  Serious: Yes (Other)
  Sender: FDA-Public Use
  Company Number: FR-TEVA-348294ISR

PATIENT
  Sex: Male

DRUGS (1)
  1. CARBOPLATIN [Suspect]

REACTIONS (3)
  - ABNORMAL FAECES [None]
  - GENERALISED ERYTHEMA [None]
  - PRURITUS GENERALISED [None]
